FAERS Safety Report 14208328 (Version 1)
Quarter: 2017Q4

REPORT INFORMATION
  Report Type: Spontaneous
  Country: US (occurrence: None)
  Receive Date: 20171121
  Receipt Date: 20171121
  Transmission Date: 20180321
  Serious: Yes (Death, Hospitalization, Other)
  Sender: FDA-Public Use
  Company Number: None

PATIENT

DRUGS (3)
  1. CLONAZEPAM. [Suspect]
     Active Substance: CLONAZEPAM
  2. AMBIEN [Suspect]
     Active Substance: ZOLPIDEM TARTRATE
  3. ESCITALOPRAM OXALATE. [Suspect]
     Active Substance: ESCITALOPRAM OXALATE

REACTIONS (3)
  - Completed suicide [None]
  - Gun shot wound [None]
  - Drug interaction [None]

NARRATIVE: CASE EVENT DATE: 20170808
